FAERS Safety Report 6302327-5 (Version None)
Quarter: 2009Q3

REPORT INFORMATION
  Report Type: 
  Country: None (occurrence: None)
  Receive Date: 20090810
  Receipt Date: 20080319
  Transmission Date: 20100115
  Serious: Yes (Hospitalization, Other)
  Sender: FDA-Public Use
  Company Number: US-ASTRAZENECA-2007UW28985

PATIENT
  Age: 15043 Day
  Sex: Female
  Weight: 88 kg

DRUGS (18)
  1. SEROQUEL [Suspect]
     Indication: SLEEP APNOEA SYNDROME
     Dosage: VARIOUS DOSES INCLUDING 300 MG
     Route: 048
     Dates: start: 20010101, end: 20070101
  2. SEROQUEL [Suspect]
     Dosage: 300 MG AT BEDTIME, IN THE MORNING
     Route: 048
     Dates: start: 20030825
  3. PROVIGIL [Concomitant]
     Dates: start: 20031107
  4. NEURONTIN [Concomitant]
     Dates: start: 20030825
  5. ACYCLOVIR [Concomitant]
     Indication: HERPES ZOSTER
     Dates: start: 20030127
  6. ACYCLOVIR [Concomitant]
     Indication: RASH
     Dates: start: 20030127
  7. EFFEXOR XR [Concomitant]
     Indication: DEPRESSION
     Dates: start: 20030825
  8. EFFEXOR XR [Concomitant]
     Dates: start: 20050101
  9. EFFEXOR XR [Concomitant]
     Dates: start: 20060101
  10. EFFEXOR XR [Concomitant]
     Dates: start: 20070101
  11. TOPROL-XL [Concomitant]
     Dosage: 25 MG QHS TO 50 MG
     Dates: start: 20030127
  12. TOPROL-XL [Concomitant]
     Dates: start: 20050101
  13. TOPROL-XL [Concomitant]
     Dates: start: 20060101
  14. TOPROL-XL [Concomitant]
     Dates: start: 20070101
  15. PRILOSEC [Concomitant]
     Indication: GASTRITIS
     Dates: start: 20010222
  16. PREMARIN [Concomitant]
     Dates: start: 20000104
  17. SOMA [Concomitant]
     Dates: start: 20000203
  18. PAXIL [Concomitant]
     Indication: DEPRESSION
     Dates: start: 20000104

REACTIONS (9)
  - ASTHMA [None]
  - BRONCHITIS [None]
  - CHRONIC OBSTRUCTIVE PULMONARY DISEASE [None]
  - DIABETES MELLITUS [None]
  - LUNG DISORDER [None]
  - NEUROPATHY PERIPHERAL [None]
  - SINUSITIS [None]
  - SPINAL OPERATION [None]
  - UPPER RESPIRATORY TRACT INFECTION [None]
